FAERS Safety Report 9550140 (Version 1)
Quarter: 2013Q3

REPORT INFORMATION
  Report Type: Report from Study
  Country: ES (occurrence: ES)
  Receive Date: 20130924
  Receipt Date: 20130924
  Transmission Date: 20140515
  Serious: Yes (Death, Other)
  Sender: FDA-Public Use
  Company Number: ES-ROCHE-1279651

PATIENT
  Sex: 0

DRUGS (3)
  1. PEG-INTERFERON ALFA 2A [Suspect]
     Indication: RENAL CELL CARCINOMA
     Dosage: 6 X 10E6 IU ON DAYS 1, 3 AND 5 OF WEEKS 1-6.
     Route: 058
  2. INTERLEUKIN-2 [Suspect]
     Indication: RENAL CELL CARCINOMA
     Dosage: 9 X 10E6 IU ON DAYS 1-6 OF WEEKS 1, 2, 4 AND 5
     Route: 058
  3. SORAFENIB [Suspect]
     Indication: RENAL CELL CARCINOMA
     Route: 048

REACTIONS (8)
  - Pulmonary embolism [Fatal]
  - Disease progression [Fatal]
  - Pyrexia [Unknown]
  - Asthenia [Unknown]
  - Decreased appetite [Unknown]
  - Vomiting [Unknown]
  - Nausea [Unknown]
  - Fatigue [Unknown]
